FAERS Safety Report 8815395 (Version 1)
Quarter: 2012Q4

REPORT INFORMATION
  Report Type: Report from Study
  Country: US (occurrence: US)
  Receive Date: 20120928
  Receipt Date: 20120928
  Transmission Date: 20130627
  Serious: Yes (Death, Hospitalization, Other)
  Sender: FDA-Public Use
  Company Number: US-US-EMD SERONO, INC.-7164373

PATIENT
  Age: 45 Year
  Sex: Male
  Weight: 82 kg

DRUGS (2)
  1. REBIF [Suspect]
     Indication: MULTIPLE SCLEROSIS
     Route: 058
     Dates: start: 20030327
  2. BACLOFEN [Concomitant]
     Indication: MULTIPLE SCLEROSIS

REACTIONS (9)
  - Choking [Fatal]
  - Pyrexia [Unknown]
  - Aphagia [Unknown]
  - Dysphagia [Unknown]
  - Fluid retention [Unknown]
  - Urinary retention [Unknown]
  - Functional gastrointestinal disorder [Unknown]
  - Skin discolouration [Unknown]
  - Pain [Unknown]
